FAERS Safety Report 9685550 (Version 5)
Quarter: 2014Q2

REPORT INFORMATION
  Report Type: Spontaneous
  Country: US (occurrence: US)
  Receive Date: 20131113
  Receipt Date: 20140612
  Transmission Date: 20141212
  Serious: Yes (Other)
  Sender: FDA-Public Use
  Company Number: US-BAYER-2013-136159

PATIENT
  Age: 38 Year
  Sex: Female
  Weight: 101 kg

DRUGS (4)
  1. MIRENA [Suspect]
     Indication: CONTRACEPTION
     Dosage: 20 MCG/24HR, CONT
     Route: 015
     Dates: start: 20131009, end: 20131030
  2. MIRENA [Suspect]
     Indication: DYSFUNCTIONAL UTERINE BLEEDING
  3. ALBUTEROL [Concomitant]
     Indication: ASTHMA
     Dosage: 2 PUFF(S), Q4HR
  4. ALLEGRA [Concomitant]
     Indication: HYPERSENSITIVITY
     Dosage: 180 MG, UNK
     Route: 048

REACTIONS (5)
  - Genital haemorrhage [Not Recovered/Not Resolved]
  - Device expulsion [None]
  - Device defective [None]
  - Off label use [None]
  - Device difficult to use [None]
